FAERS Safety Report 12356287 (Version 1)
Quarter: 2016Q2

REPORT INFORMATION
  Report Type: Spontaneous
  Country: US (occurrence: US)
  Receive Date: 20160511
  Receipt Date: 20160511
  Transmission Date: 20160815
  Serious: Yes (Other)
  Sender: FDA-Public Use
  Company Number: ADR-2015-01371

PATIENT
  Age: 24 Year
  Sex: Male

DRUGS (2)
  1. BACLOFEN. [Suspect]
     Active Substance: BACLOFEN
     Dosage: 999.1 MCG/DAY
     Route: 037
     Dates: start: 20150711
  2. BACLOFEN. [Suspect]
     Active Substance: BACLOFEN
     Dosage: 1696.9 MCG/DAY
     Route: 037
     Dates: start: 20150709, end: 20150711

REACTIONS (3)
  - Drug withdrawal syndrome [Recovered/Resolved]
  - Seizure [Recovered/Resolved]
  - Muscle spasms [Recovered/Resolved]

NARRATIVE: CASE EVENT DATE: 20150711
